FAERS Safety Report 18384597 (Version 2)
Quarter: 2021Q1

REPORT INFORMATION
  Report Type: Spontaneous
  Country: DE (occurrence: DE)
  Receive Date: 20201015
  Receipt Date: 20210215
  Transmission Date: 20210419
  Serious: Yes (Hospitalization, Other)
  Sender: FDA-Public Use
  Company Number: NVSC2020DE273900

PATIENT
  Sex: Male

DRUGS (1)
  1. ENTRESTO [Suspect]
     Active Substance: SACUBITRIL\VALSARTAN
     Indication: CARDIAC FAILURE
     Dosage: 100 MG (49/51), UNKNOWN
     Route: 065
     Dates: end: 2020

REACTIONS (5)
  - Diarrhoea [Unknown]
  - Colitis [Unknown]
  - Abdominal pain upper [Unknown]
  - Intestinal ulcer [Unknown]
  - Haematochezia [Unknown]

NARRATIVE: CASE EVENT DATE: 202010
